FAERS Safety Report 5052976-X (Version None)
Quarter: 2006Q3

REPORT INFORMATION
  Report Type: 
  Country: None (occurrence: None)
  Receive Date: 20060711
  Receipt Date: 20060616
  Transmission Date: 20061208
  Serious: Yes (Other)
  Sender: FDA-Public Use
  Company Number: FR200606004016

PATIENT
  Age: 45 Year
  Sex: Male

DRUGS (1)
  1. PROZAC [Suspect]
     Dosage: 20 MG DAILY (1/D) ORAL
     Route: 048
     Dates: start: 20060616, end: 20060616

REACTIONS (3)
  - CAUSTIC INJURY [None]
  - CIRCUMSTANCE OR INFORMATION CAPABLE OF LEADING TO MEDICATION ERROR [None]
  - GLOSSODYNIA [None]
